FAERS Safety Report 6391547-X (Version None)
Quarter: 2009Q4

REPORT INFORMATION
  Report Type: 
  Country: None (occurrence: None)
  Receive Date: 20091007
  Receipt Date: 20090930
  Transmission Date: 20100525
  Serious: No
  Sender: FDA-Public Use
  Company Number: US-B.I. PHARMACEUTICALS,INC./RIDGEFIELD-2009-BP-10900BP

PATIENT
  Sex: Male

DRUGS (5)
  1. FLOMAX [Suspect]
     Indication: URINE FLOW DECREASED
     Dosage: 0.4 MG
     Route: 048
     Dates: start: 20090908, end: 20090909
  2. LISINOPRIL [Concomitant]
     Indication: DIABETES MELLITUS
  3. GLYBURIDE [Concomitant]
     Indication: DIABETES MELLITUS
  4. ACTOS [Concomitant]
     Indication: DIABETES MELLITUS
  5. ASPIRIN [Concomitant]

REACTIONS (4)
  - ABDOMINAL DISCOMFORT [None]
  - BLOOD GLUCOSE INCREASED [None]
  - DIZZINESS [None]
  - MUSCULAR WEAKNESS [None]
